FAERS Safety Report 9474098 (Version 1)
Quarter: 2013Q3

REPORT INFORMATION
  Report Type: Spontaneous
  Country: GB (occurrence: GB)
  Receive Date: 20130823
  Receipt Date: 20130823
  Transmission Date: 20140515
  Serious: Yes (Hospitalization)
  Sender: FDA-Public Use
  Company Number: GB-ABBOTT-13P-167-1133976-00

PATIENT
  Sex: Male

DRUGS (2)
  1. HUMIRA [Suspect]
     Indication: PRODUCT USED FOR UNKNOWN INDICATION
     Dates: start: 20130225
  2. HUMIRA [Suspect]

REACTIONS (5)
  - Pyrexia [Unknown]
  - Cytomegalovirus infection [Unknown]
  - Hyperhidrosis [Unknown]
  - Influenza like illness [Unknown]
  - Decreased appetite [Unknown]
